FAERS Safety Report 6232899-0 (Version None)
Quarter: 2009Q2

REPORT INFORMATION
  Report Type: 
  Country: None (occurrence: None)
  Receive Date: 20090617
  Receipt Date: 20090610
  Transmission Date: 20091009
  Serious: Yes (Life-Threatening)
  Sender: FDA-Public Use
  Company Number: US-EISAI INC.-E3810-02905-SPO-US

PATIENT
  Sex: Female

DRUGS (2)
  1. ACIPHEX [Suspect]
     Route: 048
     Dates: end: 20090101
  2. PLAVIX [Concomitant]
     Dosage: UNKNOWN
     Route: 065

REACTIONS (1)
  - MYOCARDIAL INFARCTION [None]
